FAERS Safety Report 15000686 (Version 1)
Quarter: 2018Q2

REPORT INFORMATION
  Report Type: Spontaneous
  Country: US (occurrence: US)
  Receive Date: 20180523
  Receipt Date: 20180523
  Transmission Date: 20180711
  Serious: Yes (Other)
  Sender: FDA-Public Use
  Company Number: None

PATIENT
  Age: 43 Year
  Sex: Male
  Weight: 75 kg

DRUGS (2)
  1. STELARA [Suspect]
     Active Substance: USTEKINUMAB
     Indication: CROHN^S DISEASE
     Dosage: 1 ML EVERY 8 WEEKS; SUBCUTANEOUS?
     Route: 058
     Dates: start: 20180321, end: 20180516
  2. STELARA [Concomitant]
     Active Substance: USTEKINUMAB
     Dates: start: 20180321, end: 20180523

REACTIONS (10)
  - Heart rate increased [None]
  - Presyncope [None]
  - Drug ineffective [None]
  - Feeling abnormal [None]
  - Insomnia [None]
  - Dyspnoea [None]
  - Rash generalised [None]
  - Infusion related reaction [None]
  - Dizziness [None]
  - Pruritus [None]

NARRATIVE: CASE EVENT DATE: 20180321
